FAERS Safety Report 24439922 (Version 1)
Quarter: 2024Q4

REPORT INFORMATION
  Report Type: Spontaneous
  Country: IT (occurrence: None)
  Receive Date: 20241015
  Receipt Date: 20241015
  Transmission Date: 20250114
  Serious: Yes (Other)
  Sender: ALEXION PHARMACEUTICALS
  Company Number: None

PATIENT
  Age: 12 Year
  Weight: 49 kg

DRUGS (4)
  1. SELUMETINIB [Suspect]
     Active Substance: SELUMETINIB
     Indication: Ganglioglioma
     Dosage: 30 MG MATTINA E 40 MG SERA
  2. SELUMETINIB [Suspect]
     Active Substance: SELUMETINIB
     Dosage: 30 MG MATTINA E 40 MG SERA
  3. SELUMETINIB [Suspect]
     Active Substance: SELUMETINIB
     Dosage: 30 MG MATTINA E 40 MG SERA
  4. SELUMETINIB [Suspect]
     Active Substance: SELUMETINIB
     Dosage: 30 MG MATTINA E 40 MG SERA

REACTIONS (1)
  - Cardiac dysfunction [Recovered/Resolved]
